FAERS Safety Report 4622271-9 (Version None)
Quarter: 2005Q1

REPORT INFORMATION
  Report Type: 
  Country: None (occurrence: None)
  Receive Date: 20050328
  Receipt Date: 20050316
  Transmission Date: 20050727
  Serious: Yes (Disabling)
  Sender: FDA-Public Use
  Company Number: 2004AP05954

PATIENT
  Age: 22 Year
  Sex: Male
  Weight: 60 kg

DRUGS (2)
  1. MARCAINE [Suspect]
     Indication: INTERVERTEBRAL DISC OPERATION
     Dosage: 4 ML ONCE, ED
     Route: 008
     Dates: start: 20041004, end: 20041004
  2. MARCAINE [Suspect]
     Indication: SPINAL ANAESTHESIA
     Dosage: 4 ML ONCE, ED
     Route: 008
     Dates: start: 20041004, end: 20041004

REACTIONS (2)
  - ARACHNOIDITIS [None]
  - POST PROCEDURAL COMPLICATION [None]
